FAERS Safety Report 22646368 (Version 1)
Quarter: 2023Q2

REPORT INFORMATION
  Report Type: Report from Study
  Country: EG (occurrence: EG)
  Receive Date: 20230627
  Receipt Date: 20230627
  Transmission Date: 20230722
  Serious: Yes (Life-Threatening, Other)
  Sender: FDA-Public Use
  Company Number: EG-002147023-NVSC2023EG145502

PATIENT
  Age: 66 Year
  Sex: Female
  Weight: 60 kg

DRUGS (2)
  1. FEMARA [Suspect]
     Active Substance: LETROZOLE
     Indication: Breast cancer
     Dosage: 1 DOSAGE FORM, QD (FROM JUN OR JUL 2018)
     Route: 048
     Dates: end: 20200807
  2. VITAMAX PLUS [Concomitant]
     Indication: Supplementation therapy
     Dosage: 1 DOSAGE FORM, QD
     Route: 065
     Dates: start: 2020

REACTIONS (6)
  - Mental disorder [Recovered/Resolved]
  - Metastases to liver [Recovering/Resolving]
  - Metastases to pancreas [Recovering/Resolving]
  - Metastases to lymph nodes [Recovering/Resolving]
  - Metastases to central nervous system [Recovering/Resolving]
  - Drug ineffective [Recovering/Resolving]

NARRATIVE: CASE EVENT DATE: 20200801
